FAERS Safety Report 23578211 (Version 1)
Quarter: 2024Q1

REPORT INFORMATION
  Report Type: Spontaneous
  Country: US (occurrence: US)
  Receive Date: 20240229
  Receipt Date: 20240229
  Transmission Date: 20240410
  Serious: No
  Sender: FDA-Public Use
  Company Number: US-PADAGIS-2024PAD00266

PATIENT

DRUGS (11)
  1. BUDESONIDE [Suspect]
     Active Substance: BUDESONIDE
     Indication: Enteritis
     Dosage: UNK
     Route: 065
  2. BUDESONIDE [Suspect]
     Active Substance: BUDESONIDE
     Indication: Pouchitis
     Dosage: UNK
     Route: 065
  3. MESALAMINE [Suspect]
     Active Substance: MESALAMINE
     Indication: Pouchitis
     Dosage: UNK
     Route: 065
  4. MESALAMINE [Suspect]
     Active Substance: MESALAMINE
     Indication: Enteritis
  5. METRONIDAZOLE [Suspect]
     Active Substance: METRONIDAZOLE
     Indication: Pouchitis
     Dosage: UNK
     Route: 065
  6. METRONIDAZOLE [Suspect]
     Active Substance: METRONIDAZOLE
     Indication: Enteritis
  7. CIPROFLOXACIN [Suspect]
     Active Substance: CIPROFLOXACIN
     Indication: Pouchitis
     Dosage: UNK
     Route: 065
  8. CIPROFLOXACIN [Suspect]
     Active Substance: CIPROFLOXACIN
     Indication: Enteritis
  9. USTEKINUMAB [Suspect]
     Active Substance: USTEKINUMAB
     Indication: Pouchitis
     Dosage: UNK
     Route: 065
  10. USTEKINUMAB [Suspect]
     Active Substance: USTEKINUMAB
     Indication: Enteritis
  11. AZATHIOPRINE [Concomitant]
     Active Substance: AZATHIOPRINE
     Indication: Autoimmune hepatitis
     Dosage: UNK
     Route: 065

REACTIONS (2)
  - Drug ineffective [Unknown]
  - Product use in unapproved indication [Unknown]
